FAERS Safety Report 5212181-0 (Version None)
Quarter: 2006Q4

REPORT INFORMATION
  Report Type: 
  Country: None (occurrence: None)
  Receive Date: 20061114
  Receipt Date: 20060929
  Transmission Date: 20070319
  Serious: Yes (Other)
  Sender: FDA-Public Use
  Company Number: S06-USA-04001-01

PATIENT
  Age: 15 Year
  Sex: Male

DRUGS (4)
  1. NAMENDA [Suspect]
     Indication: EPILEPSY
     Dosage: 5 MG QD PO
     Route: 048
     Dates: start: 20060927
  2. KEPPRA [Concomitant]
  3. DEPAKOTE [Concomitant]
  4. TRANXENE [Concomitant]

REACTIONS (1)
  - CONVULSION [None]
